FAERS Safety Report 8561772-8 (Version None)
Quarter: 2012Q3

REPORT INFORMATION
  Report Type: 
  Country: None (occurrence: None)
  Receive Date: 20120802
  Receipt Date: 20120726
  Transmission Date: 20120928
  Serious: Yes (Death)
  Sender: FDA-Public Use
  Company Number: US-MYLANLABS-2010S1019330

PATIENT
  Age: 59 Year
  Sex: Male
  Weight: 97.52 kg

DRUGS (14)
  1. AMLODIPINE [Concomitant]
  2. METOPROLOL TARTRATE [Concomitant]
  3. NEURONTIN [Concomitant]
  4. LEVETIRACETAM [Concomitant]
  5. HYDROCHLOROTHIAZIDE [Concomitant]
  6. LYRICA [Concomitant]
  7. SEROQUEL [Concomitant]
  8. TEMAZEPAM [Concomitant]
  9. VISTARIL [Concomitant]
     Dosage: QID
  10. BUSPIRONE HCL [Concomitant]
  11. FENTANYL CITRATE [Suspect]
     Indication: PAIN
     Route: 062
     Dates: end: 20081113
  12. CARISOPRODOL [Concomitant]
     Dosage: BID
  13. CLONAZEPAM [Concomitant]
  14. HYDROCODONE BITARTRATE AND ACETAMINOPHEN [Suspect]
     Indication: PAIN
     Dosage: QID

REACTIONS (2)
  - OVERDOSE [None]
  - TOXICITY TO VARIOUS AGENTS [None]
